FAERS Safety Report 6360732-5 (Version None)
Quarter: 2009Q3

REPORT INFORMATION
  Report Type: 
  Country: None (occurrence: None)
  Receive Date: 20090918
  Receipt Date: 20090907
  Transmission Date: 20100115
  Serious: Yes (Hospitalization, Other)
  Sender: FDA-Public Use
  Company Number: GB-RANBAXY-2005RR-01357

PATIENT
  Age: 69 Year
  Sex: Male

DRUGS (6)
  1. RAMIPRIL [Suspect]
     Indication: HYPERTENSION
     Route: 065
     Dates: start: 19980101
  2. ASPIRIN [Suspect]
     Route: 065
  3. ATENOLOL [Suspect]
     Route: 065
  4. FELODIPINE [Suspect]
     Route: 065
  5. ATORVASTATIN [Suspect]
     Route: 065
  6. AMITRIPTYLINE [Suspect]
     Route: 065

REACTIONS (5)
  - ANGIOEDEMA [None]
  - DYSKINESIA [None]
  - SALIVARY HYPERSECRETION [None]
  - SWELLING FACE [None]
  - SWOLLEN TONGUE [None]
